FAERS Safety Report 6251655-0 (Version None)
Quarter: 2009Q2

REPORT INFORMATION
  Report Type: 
  Country: None (occurrence: None)
  Receive Date: 20090630
  Receipt Date: 20090616
  Transmission Date: 20091009
  Serious: Yes (Other)
  Sender: FDA-Public Use
  Company Number: US-PFIZER INC-2009232113

PATIENT
  Sex: Female
  Weight: 71.655 kg

DRUGS (7)
  1. LYRICA [Suspect]
     Dosage: UNK
     Route: 048
  2. BETASERON [Suspect]
     Indication: RELAPSING-REMITTING MULTIPLE SCLEROSIS
     Dosage: 8 UNK, UNK
     Route: 058
     Dates: start: 20061120, end: 20081215
  3. LUNESTA [Concomitant]
     Dosage: UNK
     Route: 048
  4. VESICARE [Concomitant]
     Dosage: UNK
  5. TYLENOL (CAPLET) [Concomitant]
     Dosage: UNK
  6. IBUPROFEN [Concomitant]
     Dosage: UNK
  7. COPAXONE [Concomitant]

REACTIONS (6)
  - ARTHRALGIA [None]
  - CONVULSION [None]
  - DIZZINESS [None]
  - HEADACHE [None]
  - PAIN [None]
  - WEIGHT INCREASED [None]
